FAERS Safety Report 19360180 (Version 1)
Quarter: 2021Q2

REPORT INFORMATION
  Report Type: Spontaneous
  Country: US (occurrence: US)
  Receive Date: 20210601
  Receipt Date: 20210601
  Transmission Date: 20210717
  Serious: No
  Sender: FDA-Public Use
  Company Number: US-PFIZER INC-2020028595

PATIENT

DRUGS (1)
  1. FRAGMIN [Suspect]
     Active Substance: DALTEPARIN SODIUM
     Dosage: UNK (2500 UNIT/0.2 ML) (QUANTITY FOR 90 DAYS: 90 SYRINGES)

REACTIONS (2)
  - Product prescribing error [Unknown]
  - Illness [Unknown]
